FAERS Safety Report 5621288-5 (Version None)
Quarter: 2008Q1

REPORT INFORMATION
  Report Type: 
  Country: None (occurrence: None)
  Receive Date: 20080128
  Receipt Date: 20080118
  Transmission Date: 20080703
  Serious: Yes (Hospitalization)
  Sender: FDA-Public Use
  Company Number: WAES 0710AUS00204

PATIENT
  Age: 45 Year
  Sex: Male

DRUGS (7)
  1. TAB RALTEGRAVIR [Suspect]
     Indication: HIV INFECTION
     Dosage: 400 MG/BID PO
     Route: 048
     Dates: start: 20070829, end: 20071012
  2. ETRAVIRINE [Suspect]
     Indication: HIV INFECTION
     Dosage: 200 MG/BID PO
     Route: 048
     Dates: start: 20070829, end: 20071012
  3. DEXAMETHASONE TAB [Suspect]
     Dosage: 2 MG/DAILY PO
     Route: 048
  4. DARUNAVIR [Concomitant]
  5. LAMIVUDINE [Concomitant]
  6. RITONAVIR [Concomitant]
  7. TENOFOVIR DISOPROXIL FUMARATE [Concomitant]

REACTIONS (14)
  - CHOLANGITIS [None]
  - CHOLESTASIS [None]
  - DRUG INTOLERANCE [None]
  - DRUG TOXICITY [None]
  - GENERAL PHYSICAL HEALTH DETERIORATION [None]
  - HEPATIC NECROSIS [None]
  - HEPATOSPLENOMEGALY [None]
  - HEPATOTOXICITY [None]
  - HYPERGLYCAEMIA [None]
  - IMMUNE RECONSTITUTION SYNDROME [None]
  - INCORRECT DOSE ADMINISTERED [None]
  - SPINAL FRACTURE [None]
  - STAPHYLOCOCCAL ABSCESS [None]
  - STAPHYLOCOCCAL SKIN INFECTION [None]
